FAERS Safety Report 13449627 (Version 4)
Quarter: 2017Q3

REPORT INFORMATION
  Report Type: Report from Study
  Country: US (occurrence: US)
  Receive Date: 20170417
  Receipt Date: 20170720
  Transmission Date: 20171127
  Serious: Yes (Hospitalization, Other)
  Sender: FDA-Public Use
  Company Number: US-ACTELION-A-NJ2017-152523

PATIENT
  Age: 45 Year
  Sex: Female

DRUGS (1)
  1. OPSUMIT [Suspect]
     Active Substance: MACITENTAN
     Indication: PULMONARY HYPERTENSION
     Dosage: 10 MG, QD
     Route: 048
     Dates: start: 20160301

REACTIONS (9)
  - Confusional state [Recovering/Resolving]
  - Rectal haemorrhage [Unknown]
  - Hepatic encephalopathy [Unknown]
  - Diarrhoea haemorrhagic [Unknown]
  - Hepatic failure [Unknown]
  - Condition aggravated [Unknown]
  - Ammonia increased [Recovered/Resolved]
  - Lower gastrointestinal haemorrhage [Unknown]
  - Anaemia of chronic disease [Unknown]

NARRATIVE: CASE EVENT DATE: 201612
